FAERS Safety Report 4394775-8 (Version None)
Quarter: 2004Q3

REPORT INFORMATION
  Report Type: 
  Country: None (occurrence: None)
  Receive Date: 20040707
  Receipt Date: 20040623
  Transmission Date: 20050211
  Serious: Yes (Hospitalization)
  Sender: FDA-Public Use
  Company Number: JP-JNJFOC-20040700271

PATIENT
  Age: 51 Year
  Sex: Female

DRUGS (1)
  1. TYLENOL (GELTAB) [Suspect]
     Indication: NASOPHARYNGITIS
     Dosage: 2700 MG TOTAL
     Dates: start: 20020901, end: 20020901

REACTIONS (3)
  - LYMPHOCYTE COUNT INCREASED [None]
  - LYMPHOCYTE STIMULATION TEST POSITIVE [None]
  - PNEUMONITIS [None]
